FAERS Safety Report 6066827-8 (Version None)
Quarter: 2009Q1

REPORT INFORMATION
  Report Type: 
  Country: None (occurrence: None)
  Receive Date: 20090205
  Receipt Date: 20090127
  Transmission Date: 20090719
  Serious: Yes (Death, Other)
  Sender: FDA-Public Use
  Company Number: MX-ELI_LILLY_AND_COMPANY-MX200901005077

PATIENT
  Age: 86 Year
  Sex: Female

DRUGS (6)
  1. HUMALOG MIX 75/25 [Suspect]
     Indication: TYPE 2 DIABETES MELLITUS
     Dosage: 25 IU, DAILY (1/D)
     Route: 058
     Dates: start: 20090120
  2. HUMALOG MIX 75/25 [Suspect]
     Dosage: 10 UG, EACH EVENING
     Route: 058
     Dates: start: 20090120
  3. HUMALOG MIX 75/25 [Suspect]
     Dosage: 18 IU, EACH EVENING
     Route: 058
  4. HUMALOG MIX 75/25 [Suspect]
     Dosage: 12 IU, EACH EVENING
     Route: 058
  5. METOPROLOL SUCCINATE [Concomitant]
     Indication: HYPERTENSION
     Dosage: 100 MG, UNKNOWN
     Route: 065
  6. CAPTOPRIL [Concomitant]
     Dosage: 75 MG, UNKNOWN
     Route: 065

REACTIONS (3)
  - BLOOD GLUCOSE INCREASED [None]
  - CEREBROVASCULAR ACCIDENT [None]
  - HYPERTENSION [None]
